FAERS Safety Report 15193306 (Version 1)
Quarter: 2018Q3

REPORT INFORMATION
  Report Type: Spontaneous
  Country: US (occurrence: US)
  Receive Date: 20180725
  Receipt Date: 20180725
  Transmission Date: 20181010
  Serious: Yes (Other)
  Sender: FDA-Public Use
  Company Number: US-AMGEN-USASP2018099753

PATIENT
  Age: 70 Year
  Sex: Female

DRUGS (1)
  1. PROLIA [Suspect]
     Active Substance: DENOSUMAB
     Indication: OSTEOPOROSIS POSTMENOPAUSAL
     Dosage: 1 DF, Q6MO (ONE INJECTION EVERY SIX MONTHS)
     Route: 065
     Dates: start: 20180213

REACTIONS (3)
  - Tooth extraction [Unknown]
  - Gingival recession [Unknown]
  - Bone graft [Unknown]

NARRATIVE: CASE EVENT DATE: 2018
